FAERS Safety Report 12796911 (Version 2)
Quarter: 2017Q3

REPORT INFORMATION
  Report Type: Spontaneous
  Country: US (occurrence: US)
  Receive Date: 20160930
  Receipt Date: 20170828
  Transmission Date: 20171127
  Serious: Yes (Other)
  Sender: FDA-Public Use
  Company Number: US-ROCHE-1836371

PATIENT
  Sex: Female

DRUGS (1)
  1. AVASTIN [Suspect]
     Active Substance: BEVACIZUMAB
     Indication: EYE DISORDER
     Dosage: 0 MG/4 ML
     Route: 050

REACTIONS (6)
  - Eye injury [Unknown]
  - Off label use [Unknown]
  - Visual impairment [Unknown]
  - Eye disorder [Unknown]
  - Intentional product use issue [Unknown]
  - Product quality issue [Unknown]

NARRATIVE: CASE EVENT DATE: 20160614
